FAERS Safety Report 17071379 (Version 1)
Quarter: 2019Q4

REPORT INFORMATION
  Report Type: Spontaneous
  Country: DE (occurrence: DE)
  Receive Date: 20191125
  Receipt Date: 20191125
  Transmission Date: 20200122
  Serious: Yes (Other)
  Sender: FDA-Public Use
  Company Number: DE-PFIZER INC-2019506512

PATIENT
  Age: 1 Day
  Sex: Male
  Weight: 2.56 kg

DRUGS (7)
  1. LYRICA [Suspect]
     Active Substance: PREGABALIN
     Indication: PRODUCT USED FOR UNKNOWN INDICATION
     Dosage: UNK
     Route: 064
  2. TETANUS TOXOID ADSORBED (VACCINE) [Concomitant]
     Active Substance: CLOSTRIDIUM TETANI TOXOID ANTIGEN (FORMALDEHYDE INACTIVATED)
     Indication: IMMUNISATION
     Dosage: TRIMESTER: 3RD
     Route: 064
  3. SOBELIN [Concomitant]
     Active Substance: CLINDAMYCIN HYDROCHLORIDE
     Indication: BACTERIAL VULVOVAGINITIS
     Dosage: TRIMESTER: 3RD
     Route: 064
  4. METHADONE [Concomitant]
     Active Substance: METHADONE HYDROCHLORIDE
     Indication: DRUG DEPENDENCE
     Dosage: 80 [MG/D (CA.) , 0. - 12.2. GESTATIONAL WEEK
     Route: 064
  5. SUBUTEX [Suspect]
     Active Substance: BUPRENORPHINE HYDROCHLORIDE
     Indication: DRUG DEPENDENCE
     Dosage: 12 MG/D, 12.2. - 41.3. GESTATIONAL WEEK
     Route: 064
  6. FOLSAEURE [Concomitant]
     Active Substance: FOLIC ACID
     Indication: VITAMIN SUPPLEMENTATION
     Dosage: 17. - 41.3. GESTATIONAL WEEK
     Route: 064
  7. AMOXICILLIN. [Concomitant]
     Active Substance: AMOXICILLIN
     Indication: URINARY TRACT INFECTION
     Dosage: TRIMESTER: 3RD
     Route: 064

REACTIONS (5)
  - Small for dates baby [Recovered/Resolved]
  - Hypertonia neonatal [Recovered/Resolved]
  - Drug withdrawal syndrome neonatal [Recovered/Resolved]
  - Agitation neonatal [Recovered/Resolved]
  - Foetal exposure during pregnancy [Unknown]

NARRATIVE: CASE EVENT DATE: 20190307
